FAERS Safety Report 24790148 (Version 2)
Quarter: 2025Q1

REPORT INFORMATION
  Report Type: Other
  Country: SI (occurrence: SI)
  Receive Date: 20241230
  Receipt Date: 20250102
  Transmission Date: 20250409
  Serious: Yes (Other)
  Sender: INCYTE
  Company Number: None

PATIENT

DRUGS (7)
  1. RUXOLITINIB [Suspect]
     Active Substance: RUXOLITINIB
     Indication: Splenomegaly
     Dosage: 20 MG, BID (STRENGHT: 20 MGDOSE: 40 MG PER DOSE)
     Route: 048
     Dates: start: 202112, end: 202201
  2. RUXOLITINIB [Suspect]
     Active Substance: RUXOLITINIB
     Dosage: 20 MG, QD (20 MG PER DOSE)
     Route: 048
     Dates: start: 202201, end: 202408
  3. RUXOLITINIB [Suspect]
     Active Substance: RUXOLITINIB
     Route: 048
     Dates: start: 202409
  4. ALVESCO [Concomitant]
     Active Substance: CICLESONIDE
     Indication: Asthma
     Dosage: 160 UG, BID (PRESSURIZED INHALATION SOLUTION) (LONG-TERM THERAPY)
     Route: 055
  5. TONOCARDIN [DOXAZOSIN MESILATE] [Concomitant]
     Indication: Hypertension
     Dosage: 4 MG, QD (1X1) (LONG-TERM THERAPY)
     Route: 048
  6. LASIX [Concomitant]
     Active Substance: FUROSEMIDE
     Indication: Diuretic therapy
     Dosage: 40 MG, QD (1X1) (LONG-TERM THERAPY)
     Route: 048
  7. ARANESP [Concomitant]
     Active Substance: DARBEPOETIN ALFA
     Indication: Product used for unknown indication
     Route: 065

REACTIONS (5)
  - Myalgia [Not Recovered/Not Resolved]
  - Muscle mass [Not Recovered/Not Resolved]
  - Malaise [Not Recovered/Not Resolved]
  - Muscular weakness [Not Recovered/Not Resolved]
  - Feeling hot [Not Recovered/Not Resolved]

NARRATIVE: CASE EVENT DATE: 20230101
